FAERS Safety Report 24433284 (Version 4)
Quarter: 2025Q2

REPORT INFORMATION
  Report Type: Spontaneous
  Country: JP (occurrence: JP)
  Receive Date: 20241014
  Receipt Date: 20250417
  Transmission Date: 20250716
  Serious: Yes (Other)
  Sender: ALEXION PHARMACEUTICALS
  Company Number: JP-ASTRAZENECA-240104749_012620_P_1

PATIENT
  Age: 63 Year

DRUGS (11)
  1. TRUQAP [Suspect]
     Active Substance: CAPIVASERTIB
     Indication: Breast cancer recurrent
     Dosage: 400 MILLIGRAM, BID (ON A 4-DAYS-ON, 3-DAYS-OFF SCHEDULE)
  2. TRUQAP [Suspect]
     Active Substance: CAPIVASERTIB
  3. TRUQAP [Suspect]
     Active Substance: CAPIVASERTIB
  4. TRUQAP [Suspect]
     Active Substance: CAPIVASERTIB
     Dosage: 400 MILLIGRAM, BID (ON A 4-DAYS-ON, 3-DAYS-OFF SCHEDULE)
  5. TRUQAP [Suspect]
     Active Substance: CAPIVASERTIB
  6. FULVESTRANT [Suspect]
     Active Substance: FULVESTRANT
     Indication: Breast cancer recurrent
  7. FULVESTRANT [Suspect]
     Active Substance: FULVESTRANT
  8. FULVESTRANT [Suspect]
     Active Substance: FULVESTRANT
  9. IBRANCE [Concomitant]
     Active Substance: PALBOCICLIB
     Indication: Breast cancer recurrent
     Route: 065
  10. ENHERTU [Concomitant]
     Active Substance: FAM-TRASTUZUMAB DERUXTECAN-NXKI
     Route: 065
  11. ENHERTU [Concomitant]
     Active Substance: FAM-TRASTUZUMAB DERUXTECAN-NXKI
     Route: 065

REACTIONS (9)
  - Metastases to skin [Unknown]
  - Rash [Recovered/Resolved]
  - Stomatitis [Recovered/Resolved]
  - Ascites [Unknown]
  - Pyrexia [Recovered/Resolved]
  - Metastases to bone [Unknown]
  - Malaise [Recovered/Resolved]
  - KL-6 increased [Unknown]
  - Off label use [Unknown]
